FAERS Safety Report 7257023-7 (Version None)
Quarter: 2011Q1

REPORT INFORMATION
  Report Type: 
  Country: None (occurrence: None)
  Receive Date: 20110129
  Receipt Date: 20100729
  Transmission Date: 20110831
  Serious: No
  Sender: FDA-Public Use
  Company Number: US-ABBOTT-10P-163-0660653-00

PATIENT
  Age: 51 Year
  Sex: Female

DRUGS (3)
  1. IMURAN [Concomitant]
     Indication: CROHN'S DISEASE
  2. HUMIRA [Suspect]
     Indication: CROHN'S DISEASE
     Dates: start: 20100704
  3. PREDNISONE [Concomitant]
     Indication: CROHN'S DISEASE

REACTIONS (2)
  - FATIGUE [None]
  - EPISTAXIS [None]
